FAERS Safety Report 8386217-2 (Version None)
Quarter: 2012Q2

REPORT INFORMATION
  Report Type: 
  Country: None (occurrence: None)
  Receive Date: 20120525
  Receipt Date: 20120523
  Transmission Date: 20120825
  Serious: Yes (Hospitalization)
  Sender: FDA-Public Use
  Company Number: AR-PFIZER INC-2012115450

PATIENT
  Age: 4 Year
  Sex: Male
  Weight: 17.2 kg

DRUGS (1)
  1. GENOTROPIN [Suspect]
     Indication: GROWTH HORMONE DEFICIENCY
     Dosage: 0.6 MG, 6X/WEEK
     Dates: start: 20111108

REACTIONS (2)
  - HUMERUS FRACTURE [None]
  - FALL [None]
